FAERS Safety Report 23902898 (Version 1)
Quarter: 2024Q2

REPORT INFORMATION
  Report Type: Spontaneous
  Country: BE (occurrence: BE)
  Receive Date: 20240527
  Receipt Date: 20240527
  Transmission Date: 20240715
  Serious: Yes (Other)
  Sender: FDA-Public Use
  Company Number: None

PATIENT
  Age: 40 Year
  Sex: Female

DRUGS (2)
  1. ENTYVIO [Suspect]
     Active Substance: VEDOLIZUMAB
     Indication: Product used for unknown indication
     Dosage: 108 MILLIGRAM
     Route: 058
     Dates: start: 2023
  2. ENTYVIO [Suspect]
     Active Substance: VEDOLIZUMAB
     Indication: Product used for unknown indication
     Dosage: 108 MILLIGRAM
     Route: 058
     Dates: start: 2023

REACTIONS (9)
  - Vertigo [Recovering/Resolving]
  - Sinusitis [Recovering/Resolving]
  - Nausea [Recovering/Resolving]
  - Optic neuritis [Recovering/Resolving]
  - Arthralgia [Recovering/Resolving]
  - Photophobia [Recovering/Resolving]
  - Hypotension [Recovering/Resolving]
  - Headache [Recovering/Resolving]
  - Syncope [Recovering/Resolving]

NARRATIVE: CASE EVENT DATE: 20230101
